FAERS Safety Report 6398443-2 (Version None)
Quarter: 2009Q4

REPORT INFORMATION
  Report Type: 
  Country: None (occurrence: None)
  Receive Date: 20091013
  Receipt Date: 20091005
  Transmission Date: 20100525
  Serious: Yes (Congenital Anomaly)
  Sender: FDA-Public Use
  Company Number: A0681612A

PATIENT
  Sex: Male
  Weight: 4.5 kg

DRUGS (6)
  1. PAXIL [Suspect]
     Indication: ANXIETY
     Dates: start: 19960701, end: 20000301
  2. VITAMIN TAB [Concomitant]
  3. ZOLOFT [Concomitant]
     Dates: start: 20000620
  4. TYLENOL SINUS [Concomitant]
  5. TAVIST-D [Concomitant]
  6. FIORICET [Concomitant]

REACTIONS (3)
  - CONGENITAL ANOMALY [None]
  - DRUG EXPOSURE DURING PREGNANCY [None]
  - FALLOT'S TETRALOGY [None]
